FAERS Safety Report 8291419-X (Version None)
Quarter: 2012Q2

REPORT INFORMATION
  Report Type: 
  Country: None (occurrence: None)
  Receive Date: 20120417
  Receipt Date: 20120411
  Transmission Date: 20120825
  Serious: Yes (Other)
  Sender: FDA-Public Use
  Company Number: ID-GLAXOSMITHKLINE-B0796036A

PATIENT
  Age: 68 Year

DRUGS (1)
  1. VOTRIENT [Suspect]
     Indication: RENAL CELL CARCINOMA
     Dosage: 800MG PER DAY
     Route: 048
     Dates: end: 20120201

REACTIONS (1)
  - NEOPLASM PROGRESSION [None]
